FAERS Safety Report 10998507 (Version 1)
Quarter: 2015Q2

REPORT INFORMATION
  Report Type: Spontaneous
  Country: BR (occurrence: None)
  Receive Date: 20150406
  Receipt Date: 20150406
  Transmission Date: 20150821
  Serious: Yes (Other)
  Sender: FDA-Public Use
  Company Number: BR-TORRENT-00002877

PATIENT
  Sex: Male

DRUGS (1)
  1. VENLIFT OD (INN:VENLAFAXINE HYDROCHLORIDE) [Suspect]
     Active Substance: VENLAFAXINE HYDROCHLORIDE
     Indication: DEPRESSION
     Route: 048
     Dates: start: 2008

REACTIONS (3)
  - Bladder dysfunction [None]
  - Spinal pain [None]
  - Spinal operation [None]

NARRATIVE: CASE EVENT DATE: 2012
